FAERS Safety Report 21232774 (Version 1)
Quarter: 2022Q3

REPORT INFORMATION
  Report Type: Report from Study
  Country: BR (occurrence: BR)
  Receive Date: 20220819
  Receipt Date: 20220819
  Transmission Date: 20221027
  Serious: Yes (Other)
  Sender: FDA-Public Use
  Company Number: BR-CELLTRION INC.-2022BR013209

PATIENT

DRUGS (7)
  1. TRUXIMA [Suspect]
     Active Substance: RITUXIMAB-ABBS
     Indication: Rheumatoid arthritis
     Dosage: 500 MILLIGRAM EVERY 6 MONTHS
     Route: 042
  2. TRUXIMA [Suspect]
     Active Substance: RITUXIMAB-ABBS
     Indication: Systemic lupus erythematosus
  3. TRUXIMA [Suspect]
     Active Substance: RITUXIMAB-ABBS
     Indication: Pneumonia
  4. LEVOTHYROXINE SODIUM [Concomitant]
     Active Substance: LEVOTHYROXINE SODIUM
     Indication: Hypothyroidism
     Dosage: UNK UNK, QD
     Route: 048
  5. HYDROXYCHLOROQUINE SULFATE [Concomitant]
     Active Substance: HYDROXYCHLOROQUINE SULFATE
     Indication: Systemic lupus erythematosus
     Dosage: ONCE A DAY
     Route: 048
  6. METHOTREXATE [Concomitant]
     Active Substance: METHOTREXATE
     Indication: Arthritis
     Dosage: 8 PILLS PER WEEK
     Route: 048
  7. OMEPRAZOLE [Concomitant]
     Active Substance: OMEPRAZOLE
     Indication: Abdominal pain upper
     Dosage: UNK UNK, QD
     Route: 048

REACTIONS (5)
  - Deafness unilateral [Unknown]
  - Systemic lupus erythematosus [Unknown]
  - Product availability issue [Unknown]
  - Underdose [Unknown]
  - Off label use [Unknown]
